FAERS Safety Report 6924888-5 (Version None)
Quarter: 2010Q3

REPORT INFORMATION
  Report Type: 
  Country: None (occurrence: None)
  Receive Date: 20100816
  Receipt Date: 20100810
  Transmission Date: 20110219
  Serious: Yes (Life-Threatening, Hospitalization)
  Sender: FDA-Public Use
  Company Number: US-ASTRAZENECA-2010SE36432

PATIENT
  Age: 56 Year
  Sex: Female
  Weight: 79.4 kg

DRUGS (24)
  1. SEROQUEL [Suspect]
     Indication: INSOMNIA
     Route: 048
     Dates: start: 20050101, end: 20100603
  2. FEXOFENADINE [Suspect]
     Indication: SINUS CONGESTION
     Route: 048
     Dates: start: 20100201
  3. SUDAFED 12 HOUR [Suspect]
     Indication: SINUS CONGESTION
     Route: 048
     Dates: start: 20100201
  4. MORPHINE SULFATE [Suspect]
     Indication: OSTEOARTHRITIS
     Dosage: 4-6 HRS PRN
     Route: 048
     Dates: start: 20091001
  5. OXYCONTIN [Suspect]
     Indication: OSTEOARTHRITIS
     Route: 048
     Dates: start: 20100101
  6. DIAZEPAM [Suspect]
     Indication: OSTEOARTHRITIS
     Route: 048
     Dates: start: 19970101
  7. RANITIDINE [Concomitant]
     Dates: start: 20050101
  8. METHYLIN [Concomitant]
     Dates: start: 20100101
  9. CYMBALTA [Concomitant]
     Dates: start: 20040101
  10. ZOLPIDEM [Concomitant]
     Dates: start: 20091001
  11. SENOKOT [Concomitant]
     Dates: start: 20091001
  12. ATENOLOL [Concomitant]
  13. FLONASE [Concomitant]
     Dates: start: 20100501
  14. CLINDAMYCIN [Concomitant]
     Dates: start: 20100510
  15. CORTISONE ACETATE [Concomitant]
     Dates: start: 20100524
  16. CARISOPRODOL [Concomitant]
     Dates: start: 20090101
  17. IMITREX [Concomitant]
     Dates: start: 20100620
  18. CHLORPROMAZINE [Concomitant]
     Dates: start: 20100604
  19. NASONEX [Concomitant]
     Dates: start: 20100510
  20. BISACODYL [Concomitant]
     Dates: start: 20100506
  21. VITAMIN D [Concomitant]
     Dates: start: 20100301
  22. NEOSPORIN [Concomitant]
     Dates: start: 20100610
  23. VICODIN [Concomitant]
     Dates: start: 20100613
  24. CALADRYL CLEAR [Concomitant]
     Dates: start: 20100625, end: 20100701

REACTIONS (2)
  - MULTIPLE DRUG OVERDOSE [None]
  - TOXIC ENCEPHALOPATHY [None]
